FAERS Safety Report 17524205 (Version 1)
Quarter: 2020Q1

REPORT INFORMATION
  Report Type: Spontaneous
  Country: MX (occurrence: MX)
  Receive Date: 20200310
  Receipt Date: 20200310
  Transmission Date: 20200409
  Serious: Yes (Death)
  Sender: FDA-Public Use
  Company Number: MX-TEIKOKU PHARMA USA-TPU2020-00129

PATIENT
  Sex: Male

DRUGS (1)
  1. VERSATIS [Suspect]
     Active Substance: LIDOCAINE
     Indication: CANCER PAIN
     Route: 061
     Dates: start: 201912, end: 202002

REACTIONS (3)
  - Malignant neoplasm progression [Fatal]
  - Drug effective for unapproved indication [Not Recovered/Not Resolved]
  - Product use in unapproved indication [Not Recovered/Not Resolved]
